FAERS Safety Report 5930257-7 (Version None)
Quarter: 2008Q4

REPORT INFORMATION
  Report Type: 
  Country: None (occurrence: None)
  Receive Date: 20081024
  Receipt Date: 20081016
  Transmission Date: 20090506
  Serious: Yes (Other)
  Sender: FDA-Public Use
  Company Number: US-PFIZER INC-2008087918

PATIENT
  Sex: Male
  Weight: 100 kg

DRUGS (9)
  1. SUTENT [Suspect]
     Indication: MALIGNANT NEOPLASM OF RENAL PELVIS
     Route: 048
     Dates: start: 20081001
  2. METFORMIN HYDROCHLORIDE [Concomitant]
     Indication: DIABETES MELLITUS
  3. AVAPRO [Concomitant]
     Indication: DIABETES MELLITUS
  4. PROSED/DS [Concomitant]
     Indication: MUSCLE SPASMS
  5. PERCOCET [Concomitant]
     Indication: PAIN
  6. MULTI-VITAMINS [Concomitant]
  7. TAMSULOSIN HCL [Concomitant]
  8. DETROL [Concomitant]
  9. ACETYLSALICYLIC ACID SRT [Concomitant]

REACTIONS (10)
  - DYSGEUSIA [None]
  - DYSURIA [None]
  - FLUSHING [None]
  - GENERAL PHYSICAL HEALTH DETERIORATION [None]
  - HAEMATOMA [None]
  - HAEMOGLOBIN INCREASED [None]
  - NECROSIS [None]
  - THROMBOSIS [None]
  - URINARY SEDIMENT PRESENT [None]
  - YELLOW SKIN [None]
